FAERS Safety Report 5884271-0 (Version None)
Quarter: 2008Q3

REPORT INFORMATION
  Report Type: 
  Country: None (occurrence: None)
  Receive Date: 20080915
  Receipt Date: 20080908
  Transmission Date: 20090109
  Serious: Yes (Hospitalization)
  Sender: FDA-Public Use
  Company Number: ZA-SANOFI-SYNTHELABO-A01200810853

PATIENT
  Sex: Male

DRUGS (7)
  1. BASAL INSULIN [Concomitant]
     Indication: DRUG USE FOR UNKNOWN INDICATION
     Dosage: UNK
     Route: 058
  2. KLACID [Suspect]
     Indication: HELICOBACTER INFECTION
     Route: 048
     Dates: start: 20080729, end: 20080805
  3. GLAMARYL [Suspect]
     Indication: DIABETES MELLITUS MANAGEMENT
     Route: 048
     Dates: start: 20080530, end: 20080827
  4. AMOXIL [Concomitant]
     Indication: HELICOBACTER INFECTION
     Dosage: UNK
     Route: 048
     Dates: end: 20080801
  5. LANSOPRAZOLE WINTHROP [Suspect]
     Indication: HELICOBACTER INFECTION
     Dosage: UNK
     Route: 048
     Dates: end: 20080801
  6. AMLODIPINE [Concomitant]
     Indication: HYPERTENSION
     Route: 048
  7. ZOLPIDEM [Suspect]
     Indication: INSOMNIA
     Route: 048

REACTIONS (3)
  - CHOLESTASIS [None]
  - JAUNDICE [None]
  - NAUSEA [None]
